FAERS Safety Report 4851572-4 (Version None)
Quarter: 2005Q4

REPORT INFORMATION
  Report Type: 
  Country: None (occurrence: None)
  Receive Date: 20051212
  Receipt Date: 20050902
  Transmission Date: 20060501
  Serious: Yes (Hospitalization)
  Sender: FDA-Public Use
  Company Number: NZ-ROCHE-416279

PATIENT
  Age: 80 Year
  Sex: Male
  Weight: 89 kg

DRUGS (13)
  1. IBANDRONIC ACID [Suspect]
     Dosage: IV INFUSION OVER 15 MINUTES DAILY FOR 3 CONSECUTIVE DAYS.
     Route: 042
     Dates: start: 20050827, end: 20050829
  2. LATANOPROST EYE DROPS [Concomitant]
     Dosage: ONE DOSE FORM IN EACH EYE.
     Route: 047
     Dates: start: 20040615
  3. TIMPILO [Concomitant]
     Dosage: 4 DOSE FORMS IN EACH EYE.
     Route: 047
     Dates: start: 20040615
  4. ASPIRIN [Concomitant]
     Dates: start: 20030615
  5. GLIPIZIDE [Concomitant]
     Dates: start: 20000615
  6. DOXAZOSIN [Concomitant]
     Dates: start: 20000615
  7. ISOSORBIDE MONONITRATE [Concomitant]
     Dates: start: 20030615
  8. SIMVASTATIN [Concomitant]
     Dates: start: 20030615
  9. DILTIAZEM HCL [Concomitant]
     Dates: start: 20030615
  10. CALCIUM GLUCONATE [Concomitant]
     Dates: start: 20050901
  11. ATENOLOL [Concomitant]
     Dates: start: 20040615
  12. FRUSEMIDE [Concomitant]
     Dates: start: 20040615
  13. EPOGEN [Concomitant]
     Dates: start: 20040615

REACTIONS (5)
  - DISEASE PROGRESSION [None]
  - FLUID OVERLOAD [None]
  - LEFT VENTRICULAR FAILURE [None]
  - RENAL FAILURE CHRONIC [None]
  - TACHYCARDIA [None]
